FAERS Safety Report 9321082 (Version 1)
Quarter: 2013Q2

REPORT INFORMATION
  Report Type: Spontaneous
  Country: US (occurrence: None)
  Receive Date: 20130530
  Receipt Date: 20130530
  Transmission Date: 20140414
  Serious: Yes (Other)
  Sender: FDA-Public Use
  Company Number: None

PATIENT
  Age: 6 Year
  Sex: Female

DRUGS (2)
  1. MONTELUKAST [Suspect]
     Route: 048
     Dates: start: 20130417
  2. SINGULAIR [Suspect]
     Dates: start: 20130207

REACTIONS (3)
  - Asthma [None]
  - Therapeutic response unexpected with drug substitution [None]
  - Product substitution issue [None]
